FAERS Safety Report 20158468 (Version 1)
Quarter: 2021Q4

REPORT INFORMATION
  Report Type: Spontaneous
  Country: FR (occurrence: FR)
  Receive Date: 20211207
  Receipt Date: 20211207
  Transmission Date: 20220304
  Serious: Yes (Hospitalization)
  Sender: FDA-Public Use
  Company Number: None

PATIENT
  Age: 83 Year
  Sex: Male

DRUGS (4)
  1. KEPPRA [Suspect]
     Active Substance: LEVETIRACETAM
     Indication: Brain empyema
     Dosage: 500 MG X 2 PAR JOUR
     Route: 048
     Dates: start: 20210915, end: 20211029
  2. FLAGYL [Suspect]
     Active Substance: METRONIDAZOLE\METRONIDAZOLE HYDROCHLORIDE
     Indication: Brain empyema
     Dosage: 1500 MILLIGRAM, ONCE DAILY (QD)
     Route: 041
     Dates: start: 20210930, end: 20211028
  3. CIPROFLOXACIN HYDROCHLORIDE [Suspect]
     Active Substance: CIPROFLOXACIN HYDROCHLORIDE
     Indication: Brain empyema
     Dosage: 1000 MILLIGRAM, ONCE DAILY (QD)
     Route: 048
     Dates: start: 20210930, end: 20211104
  4. CEFTAZIDIME [Suspect]
     Active Substance: CEFTAZIDIME
     Indication: Brain empyema
     Dosage: 6 GRAM, ONCE DAILY (QD)
     Dates: start: 20210930, end: 20211101

REACTIONS (3)
  - Rash maculo-papular [Recovered/Resolved]
  - Systemic lupus erythematosus [Recovered/Resolved]
  - Product use in unapproved indication [Unknown]

NARRATIVE: CASE EVENT DATE: 20211022
